FAERS Safety Report 10055967 (Version 1)
Quarter: 2014Q2

REPORT INFORMATION
  Report Type: Spontaneous
  Country: US (occurrence: None)
  Receive Date: 20140402
  Receipt Date: 20140402
  Transmission Date: 20141212
  Serious: Yes (Life-Threatening)
  Sender: FDA-Public Use
  Company Number: None

PATIENT
  Age: 60 Year
  Sex: Male
  Weight: 63.4 kg

DRUGS (4)
  1. HALOPERIDOL [Suspect]
     Indication: AGITATION
     Route: 058
     Dates: start: 20140306, end: 20140312
  2. HALOPERIDOL [Suspect]
     Indication: DELIRIUM
     Route: 058
     Dates: start: 20140306, end: 20140312
  3. QUETIAPINE [Suspect]
     Indication: AGITATION
     Route: 048
     Dates: start: 20140308, end: 20140320
  4. QUETIAPINE [Suspect]
     Indication: DELIRIUM
     Route: 048
     Dates: start: 20140308, end: 20140320

REACTIONS (4)
  - Metabolic encephalopathy [None]
  - Neuroleptic malignant syndrome [None]
  - Leukocytosis [None]
  - Pyrexia [None]
